FAERS Safety Report 7214062-X (Version None)
Quarter: 2011Q1

REPORT INFORMATION
  Report Type: 
  Country: None (occurrence: None)
  Receive Date: 20110107
  Receipt Date: 20101229
  Transmission Date: 20110831
  Serious: No
  Sender: FDA-Public Use
  Company Number: US-BIOGENIDEC-2010BI045171

PATIENT
  Sex: Male

DRUGS (4)
  1. AVONEX [Suspect]
     Indication: MULTIPLE SCLEROSIS
     Route: 030
     Dates: start: 20071218
  2. AVONEX [Suspect]
     Route: 030
     Dates: start: 20100101
  3. BACK SPASMS MEDICATION (NOS) [Concomitant]
     Indication: MUSCLE SPASMS
     Route: 048
  4. BACK SPASMS MEDICATION (NOS) [Concomitant]
     Indication: INSOMNIA
     Route: 048

REACTIONS (9)
  - DRUG DOSE OMISSION [None]
  - IRRITABILITY [None]
  - CONFUSIONAL STATE [None]
  - PAIN IN EXTREMITY [None]
  - HYPOAESTHESIA [None]
  - RIB FRACTURE [None]
  - FALL [None]
  - BALANCE DISORDER [None]
  - AMNESIA [None]
